FAERS Safety Report 5999317-9 (Version None)
Quarter: 2008Q4

REPORT INFORMATION
  Report Type: 
  Country: None (occurrence: None)
  Receive Date: 20081215
  Receipt Date: 20081201
  Transmission Date: 20090506
  Serious: Yes (Other)
  Sender: FDA-Public Use
  Company Number: PHHY2008CA31346

PATIENT
  Sex: Male

DRUGS (9)
  1. DIOVAN [Suspect]
     Indication: HYPERTENSION
     Dosage: 80 MG
     Dates: start: 20070925, end: 20070929
  2. ZYLOPRIM [Concomitant]
     Dosage: 200 ONCE DAILY
  3. SYNTHROID [Concomitant]
     Dosage: 0.225 MG ONCE DAILY
  4. LIPITOR [Concomitant]
     Dosage: 80 ONCE DAILY
  5. NEXIUM [Concomitant]
     Dosage: 40 ONCE DAILY
  6. ATIVAN [Concomitant]
     Dosage: 2 AT BEDTIME
  7. CALCIUM CHANNEL BLOCKERS [Concomitant]
  8. BETA BLOCKING AGENTS [Concomitant]
  9. CATAPRESSAN [Concomitant]

REACTIONS (2)
  - ARTERIOSCLEROSIS [None]
  - RENAL ARTERY STENOSIS [None]
